FAERS Safety Report 5808076-1 (Version None)
Quarter: 2008Q3

REPORT INFORMATION
  Report Type: 
  Country: None (occurrence: None)
  Receive Date: 20080711
  Receipt Date: 20080703
  Transmission Date: 20090109
  Serious: Yes (Other)
  Sender: FDA-Public Use
  Company Number: US-GENENTECH-263939

PATIENT

DRUGS (1)
  1. AVASTIN [Suspect]
     Indication: RENAL CELL CARCINOMA

REACTIONS (2)
  - GALLBLADDER OBSTRUCTION [None]
  - METASTATIC RENAL CELL CARCINOMA [None]
